FAERS Safety Report 22210111 (Version 1)
Quarter: 2023Q2

REPORT INFORMATION
  Report Type: Spontaneous
  Country: US (occurrence: US)
  Receive Date: 20230414
  Receipt Date: 20230414
  Transmission Date: 20230721
  Serious: No
  Sender: FDA-Public Use
  Company Number: US-CADILA HEALTHCARE LIMITED-US-ZYDUS-086149

PATIENT

DRUGS (1)
  1. AMITRIPTYLINE HYDROCHLORIDE [Suspect]
     Active Substance: AMITRIPTYLINE HYDROCHLORIDE
     Indication: Insomnia
     Dosage: , QD
     Route: 048
     Dates: start: 202211

REACTIONS (3)
  - Product use in unapproved indication [Not Recovered/Not Resolved]
  - Product substitution issue [Not Recovered/Not Resolved]
  - Rash [Not Recovered/Not Resolved]
